FAERS Safety Report 18640605 (Version 2)
Quarter: 2021Q1

REPORT INFORMATION
  Report Type: Spontaneous
  Country: AT (occurrence: AT)
  Receive Date: 20201221
  Receipt Date: 20210108
  Transmission Date: 20210419
  Serious: Yes (Life-Threatening, Hospitalization)
  Sender: FDA-Public Use
  Company Number: AT-EMD SERONO-E2B_90081672

PATIENT
  Age: 23 Year
  Sex: Female

DRUGS (1)
  1. REBIF [Suspect]
     Active Substance: INTERFERON BETA-1A
     Indication: MULTIPLE SCLEROSIS RELAPSE PROPHYLAXIS
     Dosage: 3 X 44 ?G/WEEK
     Route: 058
     Dates: start: 2007, end: 2020

REACTIONS (7)
  - Renal failure [Recovering/Resolving]
  - Thrombocytopenia [Recovering/Resolving]
  - Intensive care [Recovered/Resolved]
  - Pleural effusion [Recovering/Resolving]
  - Anuria [Not Recovered/Not Resolved]
  - Haemolytic uraemic syndrome [Recovering/Resolving]
  - Cardiac failure acute [Recovering/Resolving]

NARRATIVE: CASE EVENT DATE: 20201122
